FAERS Safety Report 25051558 (Version 1)
Quarter: 2025Q1

REPORT INFORMATION
  Report Type: Spontaneous
  Country: MX (occurrence: MX)
  Receive Date: 20250307
  Receipt Date: 20250307
  Transmission Date: 20250409
  Serious: Yes (Other)
  Sender: PFIZER
  Company Number: MX-PFIZER INC-PV202500027403

PATIENT
  Sex: Female

DRUGS (1)
  1. DEPO-PROVERA [Suspect]
     Active Substance: MEDROXYPROGESTERONE ACETATE
     Dates: start: 20250304, end: 20250304

REACTIONS (6)
  - Oxygen saturation decreased [Unknown]
  - Throat tightness [Unknown]
  - Pruritus [Recovered/Resolved]
  - Ocular hyperaemia [Recovered/Resolved]
  - Headache [Recovered/Resolved]
  - Bone pain [Recovered/Resolved]

NARRATIVE: CASE EVENT DATE: 20250304
